FAERS Safety Report 13181104 (Version 1)
Quarter: 2017Q1

REPORT INFORMATION
  Report Type: Spontaneous
  Country: US (occurrence: US)
  Receive Date: 20170202
  Receipt Date: 20170202
  Transmission Date: 20170428
  Serious: No
  Sender: FDA-Public Use
  Company Number: US-SMITH AND NEPHEW, INC-2016SMT00660

PATIENT
  Age: 69 Year
  Sex: Male
  Weight: 117.91 kg

DRUGS (7)
  1. LANTUS [Concomitant]
     Active Substance: INSULIN GLARGINE
     Dosage: 96 U, UNK
  2. GLIPIZIDE/METFORMIN ER [Concomitant]
  3. LISINOPRIL. [Concomitant]
     Active Substance: LISINOPRIL
     Dosage: 20 MG, UNK
  4. REGRANEX [Suspect]
     Active Substance: BECAPLERMIN
     Indication: DIABETIC ULCER
     Dosage: UNK, 1X/DAY
     Route: 061
     Dates: start: 20160726
  5. NOVOLOG [Concomitant]
     Active Substance: INSULIN ASPART
     Dosage: 8 DOSAGE UNITS, 2X/DAY
  6. XARELTO [Concomitant]
     Active Substance: RIVAROXABAN
  7. FISH OILS [Concomitant]

REACTIONS (1)
  - Skin maceration [Recovered/Resolved]

NARRATIVE: CASE EVENT DATE: 20160801
